FAERS Safety Report 17974340 (Version 15)
Quarter: 2023Q2

REPORT INFORMATION
  Report Type: Spontaneous
  Country: US (occurrence: US)
  Receive Date: 20200702
  Receipt Date: 20230629
  Transmission Date: 20230721
  Serious: Yes (Other)
  Sender: FDA-Public Use
  Company Number: US-TEVA-2020-US-1793597

PATIENT
  Age: 64 Year
  Sex: Female

DRUGS (3)
  1. QVAR REDIHALER [Suspect]
     Active Substance: BECLOMETHASONE DIPROPIONATE
     Indication: Respiration abnormal
     Dosage: 2 PUFFS TWICE DAILY/HAS BEEN ON THE QVAR REDIHALER FOR YEARS, 80 MCG
     Route: 055
  2. ALBUTEROL [Concomitant]
     Active Substance: ALBUTEROL
     Indication: Respiration abnormal
     Dosage: NEBULIZER VIALS
     Route: 065
  3. SINGULAIR [Concomitant]
     Active Substance: MONTELUKAST SODIUM
     Indication: Product used for unknown indication
     Route: 065

REACTIONS (25)
  - Craniocerebral injury [Unknown]
  - Accident [Unknown]
  - Face crushing [Unknown]
  - Vitreous detachment [Unknown]
  - Hip arthroplasty [Unknown]
  - Suicidal ideation [Unknown]
  - Malaise [Unknown]
  - Dyspnoea [Unknown]
  - Fatigue [Unknown]
  - Chest pain [Unknown]
  - Lung disorder [Unknown]
  - Memory impairment [Unknown]
  - Product dose omission in error [Unknown]
  - Insomnia [Unknown]
  - Malnutrition [Unknown]
  - Adverse event [Unknown]
  - Dysgraphia [Unknown]
  - Loss of personal independence in daily activities [Unknown]
  - Contusion [Unknown]
  - Cerebral disorder [Unknown]
  - Cardiac murmur [Unknown]
  - Gait inability [Unknown]
  - Arthropathy [Unknown]
  - Pruritus [Unknown]
  - Neoplasm skin [Unknown]

NARRATIVE: CASE EVENT DATE: 20190101
